FAERS Safety Report 6078249-4 (Version None)
Quarter: 2009Q1

REPORT INFORMATION
  Report Type: 
  Country: None (occurrence: None)
  Receive Date: 20090213
  Receipt Date: 20090119
  Transmission Date: 20090719
  Serious: Yes (Hospitalization)
  Sender: FDA-Public Use
  Company Number: JP-PFIZER INC-2008160504

PATIENT

DRUGS (21)
  1. CARDENALIN [Suspect]
     Indication: HYPERTENSION
     Dosage: 2 MG, 1X/DAY
     Route: 048
     Dates: start: 20080703, end: 20080907
  2. CARDENALIN [Suspect]
     Dosage: 2 MG, 1X/DAY
     Route: 048
     Dates: start: 20081002, end: 20081112
  3. OLMETEC [Suspect]
     Indication: ESSENTIAL HYPERTENSION
     Dosage: 10 MG, 1X/DAY
     Route: 048
     Dates: start: 20060615, end: 20070108
  4. OLMETEC [Suspect]
     Dosage: 20 MG, 1X/DAY
     Route: 048
     Dates: start: 20070109, end: 20081112
  5. CALBLOCK [Suspect]
     Dosage: 16 MG, 1X/DAY
     Route: 048
     Dates: end: 20060726
  6. CALBLOCK [Suspect]
     Dosage: 8 MG, 1X/DAY
     Route: 048
     Dates: start: 20060727, end: 20070619
  7. CALBLOCK [Suspect]
     Dosage: 16 MG, 1X/DAY
     Route: 048
     Dates: start: 20070620, end: 20081013
  8. LASIX [Suspect]
     Dosage: 20 MG, 1X/DAY
     Route: 048
     Dates: end: 20080107
  9. LASIX [Suspect]
     Dosage: 40 MG, 1X/DAY
     Route: 048
     Dates: start: 20080108, end: 20081112
  10. FLUITRAN [Suspect]
     Dosage: 1 MG, 1X/DAY
     Route: 048
     Dates: start: 20060518, end: 20060629
  11. LIPITOR [Concomitant]
     Dosage: 10 MG, 2X/DAY
     Route: 048
     Dates: end: 20070417
  12. LIPITOR [Concomitant]
     Dosage: 10 MG, 1X/DAY
     Route: 048
     Dates: start: 20070417, end: 20070717
  13. GLUCOBAY [Concomitant]
     Dosage: 100 MG, 3X/DAY
     Route: 048
     Dates: end: 20070619
  14. GLUCOBAY [Concomitant]
     Dosage: 5 MG, 3X/DAY
     Route: 048
     Dates: start: 20070620, end: 20081112
  15. LISINOPRIL [Concomitant]
     Dosage: 10 MG, 1X/DAY
     Route: 048
     Dates: end: 20081112
  16. ALDACTONE [Concomitant]
     Dosage: 25 MG, 1X/DAY
     Route: 048
     Dates: end: 20081112
  17. MITIGLINIDE [Concomitant]
     Dosage: UNK, 30 MG
     Route: 048
     Dates: end: 20081112
  18. ASPIRIN [Concomitant]
     Dosage: 100 MG, 1X/DAY
     Route: 048
     Dates: start: 20070904, end: 20081112
  19. MEVALOTIN [Concomitant]
     Dosage: 5 MG, 1X/DAY
     Route: 048
     Dates: start: 20080422, end: 20081112
  20. ALL OTHER THERAPEUTIC PRODUCTS [Concomitant]
     Dosage: 10 MG, 3X/DAY
     Route: 048
     Dates: end: 20081112
  21. ALLOPURINOL [Concomitant]
     Dosage: 100 MG, 1X/DAY
     Route: 048
     Dates: start: 20080904, end: 20081112

REACTIONS (2)
  - ATRIAL FIBRILLATION [None]
  - HYPOTENSION [None]
